FAERS Safety Report 11031863 (Version 1)
Quarter: 2015Q2

REPORT INFORMATION
  Report Type: Spontaneous
  Country: US (occurrence: US)
  Receive Date: 20150415
  Receipt Date: 20150415
  Transmission Date: 20150821
  Serious: No
  Sender: FDA-Public Use
  Company Number: US-ASTRAZENECA-2015SE32599

PATIENT

DRUGS (1)
  1. SYMBICORT [Suspect]
     Active Substance: BUDESONIDE\FORMOTEROL FUMARATE DIHYDRATE
     Dosage: TWO PUFFS,TWO TIMES A DAY
     Route: 055

REACTIONS (3)
  - Dysphonia [Unknown]
  - Circumstance or information capable of leading to medication error [Unknown]
  - Multiple allergies [Unknown]
